FAERS Safety Report 5263395-5 (Version None)
Quarter: 2007Q1

REPORT INFORMATION
  Report Type: 
  Country: None (occurrence: None)
  Receive Date: 20070313
  Receipt Date: 20070309
  Transmission Date: 20070707
  Serious: Yes (Death)
  Sender: FDA-Public Use
  Company Number: PHBS2007JP01979

PATIENT
  Age: 76 Year
  Sex: Female

DRUGS (12)
  1. DIOVAN [Suspect]
     Indication: HYPERTENSION
     Dosage: 160 MG/DAY
     Route: 048
     Dates: start: 20050708, end: 20060816
  2. INNOLET [Concomitant]
     Dosage: 24 IU, UNK
     Route: 058
     Dates: end: 20060816
  3. INSULIN [Concomitant]
  4. LASIX [Concomitant]
     Dosage: 40 MG, UNK
     Route: 048
     Dates: end: 20060816
  5. THYRADIN S [Concomitant]
     Dosage: 50 UG, UNK
     Route: 048
  6. LENDORMIN [Concomitant]
     Dosage: 0.25 MG, UNK
     Route: 048
  7. CALBLOCK [Concomitant]
     Dosage: 16 MG, UNK
     Route: 048
  8. LIPITOR [Concomitant]
     Dosage: 5 MG, UNK
     Route: 048
  9. ALFAROL [Concomitant]
     Dosage: 1 UG, UNK
     Route: 048
  10. LOPEMIN [Concomitant]
     Dosage: 2 MG, UNK
     Route: 048
  11. ZANTAC [Concomitant]
     Dosage: 300 MG, UNK
     Route: 048
  12. KREMEZIN [Concomitant]
     Dosage: 6 G, UNK
     Route: 048

REACTIONS (4)
  - BLOOD CREATININE INCREASED [None]
  - BLOOD UREA INCREASED [None]
  - HAEMODIALYSIS [None]
  - RENAL FAILURE [None]
